FAERS Safety Report 7331059-X (Version None)
Quarter: 2011Q1

REPORT INFORMATION
  Report Type: 
  Country: None (occurrence: None)
  Receive Date: 20110304
  Receipt Date: 20110223
  Transmission Date: 20110831
  Serious: Yes (Hospitalization)
  Sender: FDA-Public Use
  Company Number: US-RB-022909-11

PATIENT
  Age: 48 Year
  Sex: Male

DRUGS (5)
  1. SUBOXONE [Suspect]
     Route: 060
     Dates: start: 20110101
  2. SUBOXONE [Suspect]
     Route: 060
     Dates: start: 20091101, end: 20100801
  3. SUBOXONE [Suspect]
     Dosage: TOOK VARIOUS DOSES TO SELF-TAPER
     Route: 060
     Dates: start: 20100801, end: 20100901
  4. SUBOXONE [Suspect]
     Indication: DRUG DEPENDENCE
     Route: 060
     Dates: start: 20110101, end: 20110101
  5. SUBOXONE [Suspect]
     Indication: DRUG DEPENDENCE
     Route: 060
     Dates: start: 20100901, end: 20110101

REACTIONS (4)
  - DEPRESSION [None]
  - INTENTIONAL DRUG MISUSE [None]
  - TONGUE BLISTERING [None]
  - SUICIDAL IDEATION [None]
